FAERS Safety Report 13505186 (Version 10)
Quarter: 2018Q2

REPORT INFORMATION
  Report Type: Report from Study
  Country: ES (occurrence: ES)
  Receive Date: 20170502
  Receipt Date: 20180612
  Transmission Date: 20180711
  Serious: Yes (Hospitalization)
  Sender: FDA-Public Use
  Company Number: ES-ROCHE-1897891

PATIENT
  Age: 81 Year
  Sex: Female
  Weight: 47.6 kg

DRUGS (7)
  1. CARBOPLATIN. [Suspect]
     Active Substance: CARBOPLATIN
     Indication: NON-SMALL CELL LUNG CANCER STAGE IV
     Dosage: 30 MINUTES AFTER COMPLETION OF PEMETREXED ADMINISTRATION INITIAL TARGET AREA UNDER THE CONCENTRATION
     Route: 042
     Dates: start: 20170130
  2. NOLOTIL [Concomitant]
     Indication: STOMATITIS
  3. OMEPRAZOL [Concomitant]
     Active Substance: OMEPRAZOLE
     Indication: PROPHYLAXIS
     Route: 065
     Dates: start: 20170120
  4. NOLOTIL [Concomitant]
     Indication: PAIN
     Route: 065
     Dates: start: 20170120
  5. PEMETREXED. [Suspect]
     Active Substance: PEMETREXED
     Indication: NON-SMALL CELL LUNG CANCER STAGE IV
     Dosage: 75 MG/M2?THE MOST RECENT DOSE OF PEMETREXED (566 MG) PRIOR TO THE ONSET OF THE INFUSION REACTION REL
     Route: 042
     Dates: start: 20170130
  6. TAPENTADOL [Concomitant]
     Active Substance: TAPENTADOL
     Indication: PAIN
     Route: 065
     Dates: start: 20170120
  7. ATEZOLIZUMAB. [Suspect]
     Active Substance: ATEZOLIZUMAB
     Indication: NON-SMALL CELL LUNG CANCER STAGE IV
     Dosage: THE MOST RECENT DOSE OF ATEZOLIZUMAB WAS ON 21/FEB/2017, DOSE: 600 UNIT?THERAPY INTERRUPTED?MOST REC
     Route: 042
     Dates: start: 20170130

REACTIONS (2)
  - Infusion related reaction [Recovered/Resolved]
  - Dermatitis [Recovered/Resolved]

NARRATIVE: CASE EVENT DATE: 20170221
